FAERS Safety Report 5279086-0 (Version None)
Quarter: 2007Q1

REPORT INFORMATION
  Report Type: 
  Country: None (occurrence: None)
  Receive Date: 20070328
  Receipt Date: 20070321
  Transmission Date: 20070707
  Serious: Yes (Other)
  Sender: FDA-Public Use
  Company Number: GB-GLAXOSMITHKLINE-B0463818A

PATIENT
  Sex: Male

DRUGS (1)
  1. NIQUITIN CQ 2MG LOZENGE [Suspect]
     Dosage: 2MG FIFTEEN TIMES PER DAY
     Route: 002

REACTIONS (3)
  - DEPENDENCE [None]
  - INTENTIONAL DRUG MISUSE [None]
  - MOOD ALTERED [None]
